FAERS Safety Report 16525102 (Version 4)
Quarter: 2019Q3

REPORT INFORMATION
  Report Type: Spontaneous
  Country: AU (occurrence: AU)
  Receive Date: 20190702
  Receipt Date: 20190924
  Transmission Date: 20191004
  Serious: Yes (Life-Threatening, Hospitalization, Other)
  Sender: FDA-Public Use
  Company Number: PHHY2019AU151840

PATIENT
  Sex: Female

DRUGS (6)
  1. WARFARIN [Concomitant]
     Active Substance: WARFARIN
     Indication: PRODUCT USED FOR UNKNOWN INDICATION
     Dosage: UNK
     Route: 065
  2. METHOTREXATE. [Suspect]
     Active Substance: METHOTREXATE
     Indication: RHEUMATIC DISORDER
     Dosage: UNK
     Route: 048
     Dates: start: 201312, end: 201605
  3. PLAQUENIL [Suspect]
     Active Substance: HYDROXYCHLOROQUINE SULFATE
     Indication: PRODUCT USED FOR UNKNOWN INDICATION
     Route: 065
  4. ENDEP [Suspect]
     Active Substance: AMITRIPTYLINE HYDROCHLORIDE
     Indication: PRODUCT USED FOR UNKNOWN INDICATION
     Route: 065
  5. XOLAIR [Suspect]
     Active Substance: OMALIZUMAB
     Indication: PRODUCT USED FOR UNKNOWN INDICATION
     Dosage: UNK
     Route: 065
     Dates: start: 20180929
  6. METHOTREXATE. [Suspect]
     Active Substance: METHOTREXATE
     Dosage: UNK
     Route: 048
     Dates: start: 201903

REACTIONS (28)
  - Pain [Unknown]
  - Vocal cord dysfunction [Unknown]
  - Gastric disorder [Unknown]
  - Photosensitivity reaction [Unknown]
  - Cough [Unknown]
  - Pruritus [Unknown]
  - Device issue [Unknown]
  - Anaphylactic reaction [Recovered/Resolved]
  - Rheumatic disorder [Unknown]
  - Therapeutic response unexpected [Recovering/Resolving]
  - Headache [Recovered/Resolved]
  - Dyspnoea [Not Recovered/Not Resolved]
  - Musculoskeletal stiffness [Not Recovered/Not Resolved]
  - Hypoaesthesia [Recovered/Resolved]
  - Pleurisy [Unknown]
  - Costochondritis [Unknown]
  - Chest pain [Unknown]
  - Injection site bruising [Recovered/Resolved]
  - Feeling abnormal [Recovered/Resolved]
  - Amnesia [Unknown]
  - Arthritis [Unknown]
  - Nausea [Unknown]
  - Skin exfoliation [Unknown]
  - Asthma [Recovering/Resolving]
  - Suffocation feeling [Unknown]
  - Sunburn [Unknown]
  - Blister [Unknown]
  - Fatigue [Recovered/Resolved]

NARRATIVE: CASE EVENT DATE: 2015
